FAERS Safety Report 5325856-X (Version None)
Quarter: 2007Q2

REPORT INFORMATION
  Report Type: 
  Country: None (occurrence: None)
  Receive Date: 20070501
  Receipt Date: 20070416
  Transmission Date: 20071010
  Serious: No
  Sender: FDA-Public Use
  Company Number: WSDF_00637

PATIENT
  Age: 34 Year
  Sex: Female

DRUGS (1)
  1. WINRHO SDF [Suspect]
     Dates: start: 20070114, end: 20070114

REACTIONS (5)
  - CHILLS [None]
  - HAEMOLYSIS [None]
  - HEADACHE [None]
  - HYPERSENSITIVITY [None]
  - RENAL IMPAIRMENT [None]
